FAERS Safety Report 7621175 (Version 4)
Quarter: 2014Q1

REPORT INFORMATION
  Report Type: Spontaneous
  Country: US (occurrence: US)
  Receive Date: 20101008
  Receipt Date: 20140128
  Transmission Date: 20141002
  Serious: Yes (Hospitalization, Other)
  Sender: FDA-Public Use
  Company Number: US-BAYER-201035882NA

PATIENT
  Age: 43 Year
  Sex: Female
  Weight: 74.83 kg

DRUGS (11)
  1. YAZ [Suspect]
     Indication: PREMENSTRUAL SYNDROME
     Dosage: UNK UNK, QD
     Dates: start: 20070308, end: 20091115
  2. OCELLA [Suspect]
     Indication: PREMENSTRUAL SYNDROME
     Dosage: UNK UNK, QD
     Dates: start: 20070308, end: 20091115
  3. GABITRIL [Concomitant]
     Indication: BACK PAIN
     Dosage: 16 MG, BID
  4. SKELAXIN [Concomitant]
  5. FENTANYL [Concomitant]
  6. VITAMIN D [Concomitant]
  7. COLACE [Concomitant]
  8. FERROUS SULFATE [Concomitant]
  9. CALCIUM [Concomitant]
  10. LIDODERM [Concomitant]
     Indication: BACK PAIN
     Dosage: 75 MCG/24HR, UNK
     Route: 061
  11. DURAGESIC [Concomitant]
     Indication: BACK PAIN
     Route: 061

REACTIONS (8)
  - Gallbladder disorder [None]
  - Cholecystitis chronic [None]
  - Gallbladder pain [None]
  - Gastrooesophageal reflux disease [None]
  - Abdominal pain upper [None]
  - Palpitations [None]
  - Upper extremity mass [None]
  - Lower extremity mass [None]
